FAERS Safety Report 6993552-9 (Version None)
Quarter: 2010Q3

REPORT INFORMATION
  Report Type: 
  Country: None (occurrence: None)
  Receive Date: 20100917
  Receipt Date: 20100701
  Transmission Date: 20110219
  Serious: No
  Sender: FDA-Public Use
  Company Number: US-ASTRAZENECA-2007UW21491

PATIENT
  Age: 540 Month
  Sex: Male
  Weight: 195 kg

DRUGS (24)
  1. SEROQUEL [Suspect]
     Indication: DEPRESSION
     Dosage: 200 MG TO 600 MG
     Route: 048
     Dates: start: 20030101
  2. SEROQUEL [Suspect]
     Indication: POST-TRAUMATIC STRESS DISORDER
     Dosage: 200 MG TO 600 MG
     Route: 048
     Dates: start: 20030101
  3. SEROQUEL [Suspect]
     Route: 048
     Dates: start: 20031013
  4. SEROQUEL [Suspect]
     Route: 048
     Dates: start: 20031013
  5. PAXIL [Concomitant]
     Dosage: 40-60 MG
     Dates: start: 20031013
  6. ALPRAZOLAM [Concomitant]
     Dates: start: 20031013
  7. ACULAR [Concomitant]
     Dates: start: 20031013
  8. ALLEGRA D 24 HOUR [Concomitant]
     Dates: start: 20031016
  9. MIRTAZAPINE [Concomitant]
     Dates: start: 20031013
  10. RANITIDINE [Concomitant]
     Dosage: STRENGTH - 300 MG, 150 MG
     Dates: start: 20031031
  11. RHINOCORT [Concomitant]
     Dates: start: 20031031
  12. MOTRIN [Concomitant]
     Dates: start: 20031031
  13. METFORMIN [Concomitant]
     Dosage: STRENGTH - 500 MG, 1000 MG
     Dates: start: 20040109
  14. LISINO/HCTZ [Concomitant]
     Dosage: STRENGTH - 20 - 25 M
     Dates: start: 20031202
  15. INDOMETHACIN [Concomitant]
     Dates: start: 20040428
  16. NAPROXEN [Concomitant]
     Dates: start: 20040608
  17. PROPO-N/APAP [Concomitant]
     Dosage: STRENGTH - 100 - 650
     Dates: start: 20040608
  18. AMOXICILLIN [Concomitant]
     Dates: start: 20041029
  19. CLINDAMYCIN [Concomitant]
     Dates: start: 20041112
  20. PENICILLIN VK [Concomitant]
     Dates: start: 20041119
  21. CIPROFLOXACIN [Concomitant]
     Dates: start: 20041214
  22. GLYBURIDE [Concomitant]
     Dosage: STRENGTH - 1.25 MG, 5 MG
     Dates: start: 20041214
  23. PREDNISONE [Concomitant]
     Dates: start: 20080303
  24. HYDROCHLOROT [Concomitant]
     Dates: start: 20080303

REACTIONS (2)
  - DIABETIC COMPLICATION [None]
  - TYPE 2 DIABETES MELLITUS [None]
